FAERS Safety Report 18718314 (Version 1)
Quarter: 2021Q1

REPORT INFORMATION
  Report Type: Report from Study
  Country: FR (occurrence: FR)
  Receive Date: 20210108
  Receipt Date: 20210108
  Transmission Date: 20210419
  Serious: Yes (Hospitalization, Other)
  Sender: FDA-Public Use
  Company Number: FR-TAKEDA-FR201835590

PATIENT

DRUGS (30)
  1. PAROXETINE. [Concomitant]
     Active Substance: PAROXETINE
     Indication: DEPRESSION
  2. BISOPROLOL [Concomitant]
     Active Substance: BISOPROLOL
     Indication: HYPERTENSION
  3. TEDUGLUTIDE [Suspect]
     Active Substance: TEDUGLUTIDE
     Dosage: 3.2 MILLIGRAM (0.05 MG/KG, 7 TED DOSES PER WEEK)
     Route: 065
     Dates: start: 20160603, end: 20160704
  4. TEDUGLUTIDE [Suspect]
     Active Substance: TEDUGLUTIDE
     Dosage: 3 MILLIGRAM (0.05 MG/KG, 7 TED DOSES PER WEEK)
     Route: 065
     Dates: start: 20160704, end: 20160824
  5. TEDUGLUTIDE [Suspect]
     Active Substance: TEDUGLUTIDE
     Indication: SHORT-BOWEL SYNDROME
     Dosage: 3.4 MILLIGRAM (0.05 MG/KG, 7 TED DOSES PER WEEK)
     Route: 065
     Dates: start: 20160511, end: 20160603
  6. TEDUGLUTIDE [Suspect]
     Active Substance: TEDUGLUTIDE
     Dosage: 3.2 MILLIGRAM (0.05 MG/KG, 7 TED DOSES PER WEEK)
     Route: 065
     Dates: start: 20160603, end: 20160704
  7. TEDUGLUTIDE [Suspect]
     Active Substance: TEDUGLUTIDE
     Dosage: 3 MILLIGRAM (0.05 MG/KG, 7 TED DOSES PER WEEK)
     Route: 065
     Dates: start: 20160920, end: 20170328
  8. TEDUGLUTIDE [Suspect]
     Active Substance: TEDUGLUTIDE
     Dosage: 3 MILLIGRAM (0.05 MG/KG, 7 TED DOSES PER WEEK)
     Route: 065
     Dates: start: 20160920, end: 20170328
  9. TEDUGLUTIDE [Suspect]
     Active Substance: TEDUGLUTIDE
     Dosage: 3 MILLIGRAM (0.05 MG/KG, 7 TED DOSES PER WEEK)
     Route: 065
     Dates: start: 20160704, end: 20160824
  10. TEDUGLUTIDE [Suspect]
     Active Substance: TEDUGLUTIDE
     Dosage: 3 MILLIGRAM (0.05 MG/KG, 7 TED DOSES PER WEEK)
     Route: 065
     Dates: start: 20160704, end: 20160824
  11. TEDUGLUTIDE [Suspect]
     Active Substance: TEDUGLUTIDE
     Dosage: 2.8 MILLIGRAM (0.05 MG/KG, 7 TED DOSES PER WEEK)
     Route: 065
     Dates: start: 20170329, end: 20170526
  12. VITAMIN B1 AND B6 [Concomitant]
     Active Substance: PYRIDOXINE HYDROCHLORIDE\THIAMINE HYDROCHLORIDE
     Indication: SUPPLEMENTATION THERAPY
  13. VEDOLIZUMAB [Concomitant]
     Active Substance: VEDOLIZUMAB
     Indication: CROHN^S DISEASE
  14. TEDUGLUTIDE [Suspect]
     Active Substance: TEDUGLUTIDE
     Indication: SHORT-BOWEL SYNDROME
     Dosage: 3.4 MILLIGRAM (0.05 MG/KG, 7 TED DOSES PER WEEK)
     Route: 065
     Dates: start: 20160511, end: 20160603
  15. TEDUGLUTIDE [Suspect]
     Active Substance: TEDUGLUTIDE
     Dosage: 3.2 MILLIGRAM (0.05 MG/KG, 7 TED DOSES PER WEEK)
     Route: 065
     Dates: start: 20160603, end: 20160704
  16. TEDUGLUTIDE [Suspect]
     Active Substance: TEDUGLUTIDE
     Dosage: 3 MILLIGRAM (0.05 MG/KG, 7 TED DOSES PER WEEK)
     Route: 065
     Dates: start: 20160920, end: 20170328
  17. TEDUGLUTIDE [Suspect]
     Active Substance: TEDUGLUTIDE
     Dosage: 2.8 MILLIGRAM (0.05 MG/KG, 7 TED DOSES PER WEEK)
     Route: 065
     Dates: start: 20170329, end: 20170526
  18. TEDUGLUTIDE [Suspect]
     Active Substance: TEDUGLUTIDE
     Dosage: 3 MILLIGRAM (0.05 MG/KG, 7 TED DOSES PER WEEK)
     Route: 065
     Dates: start: 20160704, end: 20160824
  19. TEDUGLUTIDE [Suspect]
     Active Substance: TEDUGLUTIDE
     Dosage: 3.1 MILLIGRAM (0.0 MG/KG, 7 TED DOSES PER WEEK)
     Route: 065
     Dates: start: 20160824, end: 20160920
  20. TEDUGLUTIDE [Suspect]
     Active Substance: TEDUGLUTIDE
     Dosage: 3.1 MILLIGRAM (0.0 MG/KG, 7 TED DOSES PER WEEK)
     Route: 065
     Dates: start: 20160824, end: 20160920
  21. TEDUGLUTIDE [Suspect]
     Active Substance: TEDUGLUTIDE
     Dosage: 3.2 MILLIGRAM (0.05 MG/KG, 7 TED DOSES PER WEEK)
     Route: 065
     Dates: start: 20160603, end: 20160704
  22. TEDUGLUTIDE [Suspect]
     Active Substance: TEDUGLUTIDE
     Dosage: 3.1 MILLIGRAM (0.0 MG/KG, 7 TED DOSES PER WEEK)
     Route: 065
     Dates: start: 20160824, end: 20160920
  23. TEDUGLUTIDE [Suspect]
     Active Substance: TEDUGLUTIDE
     Dosage: 3 MILLIGRAM (0.05 MG/KG, 7 TED DOSES PER WEEK)
     Route: 065
     Dates: start: 20160920, end: 20170328
  24. LOVENOX [Concomitant]
     Active Substance: ENOXAPARIN SODIUM
     Indication: THROMBOSIS PROPHYLAXIS
  25. KAYEXALATE [Concomitant]
     Active Substance: SODIUM POLYSTYRENE SULFONATE
     Indication: SUPPLEMENTATION THERAPY
  26. TEDUGLUTIDE [Suspect]
     Active Substance: TEDUGLUTIDE
     Indication: SHORT-BOWEL SYNDROME
     Dosage: 3.4 MILLIGRAM (0.05 MG/KG, 7 TED DOSES PER WEEK)
     Route: 065
     Dates: start: 20160511, end: 20160603
  27. TEDUGLUTIDE [Suspect]
     Active Substance: TEDUGLUTIDE
     Indication: SHORT-BOWEL SYNDROME
     Dosage: 3.4 MILLIGRAM (0.05 MG/KG, 7 TED DOSES PER WEEK)
     Route: 065
     Dates: start: 20160511, end: 20160603
  28. TEDUGLUTIDE [Suspect]
     Active Substance: TEDUGLUTIDE
     Dosage: 3.1 MILLIGRAM (0.0 MG/KG, 7 TED DOSES PER WEEK)
     Route: 065
     Dates: start: 20160824, end: 20160920
  29. TEDUGLUTIDE [Suspect]
     Active Substance: TEDUGLUTIDE
     Dosage: 2.8 MILLIGRAM (0.05 MG/KG, 7 TED DOSES PER WEEK)
     Route: 065
     Dates: start: 20170329, end: 20170526
  30. TEDUGLUTIDE [Suspect]
     Active Substance: TEDUGLUTIDE
     Dosage: 2.8 MILLIGRAM (0.05 MG/KG, 7 TED DOSES PER WEEK)
     Route: 065
     Dates: start: 20170329, end: 20170526

REACTIONS (3)
  - Joint dislocation [Recovered/Resolved]
  - Vena cava thrombosis [Not Recovered/Not Resolved]
  - Anaemia [Not Recovered/Not Resolved]

NARRATIVE: CASE EVENT DATE: 20180807
